FAERS Safety Report 5018342-8 (Version None)
Quarter: 2006Q2

REPORT INFORMATION
  Report Type: 
  Country: None (occurrence: None)
  Receive Date: 20060605
  Receipt Date: 20060526
  Transmission Date: 20061013
  Serious: Yes (Hospitalization)
  Sender: FDA-Public Use
  Company Number: US-JNJFOC-20060506551

PATIENT
  Sex: Female
  Weight: 92.99 kg

DRUGS (9)
  1. DURAGESIC-100 [Suspect]
     Indication: PAIN
     Route: 062
  2. PRILOSEC [Concomitant]
     Indication: GASTROOESOPHAGEAL REFLUX DISEASE
     Route: 048
  3. PREVACID [Concomitant]
     Indication: HYPERCHOLESTEROLAEMIA
     Route: 048
  4. ASACOL [Concomitant]
     Indication: IRRITABLE BOWEL SYNDROME
     Route: 048
  5. NEURONTIN [Concomitant]
     Indication: PRURITUS
     Route: 048
  6. DARVOCET-N 100 [Concomitant]
     Route: 048
  7. DARVOCET-N 100 [Concomitant]
     Indication: BREAKTHROUGH PAIN
     Route: 048
  8. PERCOCET [Concomitant]
     Route: 048
  9. PERCOCET [Concomitant]
     Indication: BREAKTHROUGH PAIN
     Dosage: 5-325 TABLETS 1 EVERY 6 HOURS PER ORAL
     Route: 048

REACTIONS (5)
  - DEHYDRATION [None]
  - FEELING COLD [None]
  - HOT FLUSH [None]
  - INSOMNIA [None]
  - LABORATORY TEST ABNORMAL [None]
